FAERS Safety Report 10658771 (Version 2)
Quarter: 2015Q2

REPORT INFORMATION
  Report Type: Report from Study
  Country: DE (occurrence: DE)
  Receive Date: 20141217
  Receipt Date: 20150508
  Transmission Date: 20150821
  Serious: Yes (Other)
  Sender: FDA-Public Use
  Company Number: DE-SA-2014SA171042

PATIENT
  Sex: Female
  Weight: 70 kg

DRUGS (9)
  1. VENLAFAXINE [Concomitant]
     Active Substance: VENLAFAXINE HYDROCHLORIDE
     Dosage: 75 1X1 DF
  2. LYRICA [Concomitant]
     Active Substance: PREGABALIN
     Dosage: 75 1DF-0-2DF
  3. OMEPRAZOLE. [Concomitant]
     Active Substance: OMEPRAZOLE
     Dosage: 40 1X1DF
  4. BETAHISTINE [Concomitant]
     Active Substance: BETAHISTINE
     Dosage: 12 AS NEEDED
  5. METOPROLOL [Concomitant]
     Active Substance: METOPROLOL
     Dosage: 47.5 2X1/2DF
  6. AMANTADIN [Concomitant]
     Active Substance: AMANTADINE
     Dosage: 100 1X1 DF
  7. LEMTRADA [Suspect]
     Active Substance: ALEMTUZUMAB
     Indication: MULTIPLE SCLEROSIS
     Route: 041
     Dates: start: 20141013, end: 20141017
  8. IBU [Concomitant]
     Active Substance: IBUPROFEN
     Dosage: 800
  9. SATIVEX [Concomitant]
     Active Substance: NABIXIMOLS
     Dosage: SPRAY

REACTIONS (8)
  - Laboratory test abnormal [Unknown]
  - Haematoma [Recovered/Resolved]
  - Pigmentation disorder [Unknown]
  - Limb injury [Unknown]
  - Haemorrhage [Unknown]
  - Asthenia [Unknown]
  - Lymphocyte count abnormal [Unknown]
  - Fatigue [Unknown]
